FAERS Safety Report 23418942 (Version 1)
Quarter: 2024Q1

REPORT INFORMATION
  Report Type: Spontaneous
  Country: US (occurrence: US)
  Receive Date: 20240118
  Receipt Date: 20240118
  Transmission Date: 20240409
  Serious: Yes (Other)
  Sender: FDA-Public Use
  Company Number: US-ELI_LILLY_AND_COMPANY-US202401004111

PATIENT
  Age: 84 Year
  Sex: Female

DRUGS (1)
  1. VERZENIO [Suspect]
     Active Substance: ABEMACICLIB
     Indication: Intraductal proliferative breast lesion
     Dosage: 100 MG, UNKNOWN
     Route: 065
     Dates: start: 20231005, end: 20231229

REACTIONS (12)
  - Muscular weakness [Unknown]
  - Abdominal pain upper [Unknown]
  - Arthralgia [Unknown]
  - Headache [Unknown]
  - Hot flush [Unknown]
  - Dizziness [Unknown]
  - Rash [Unknown]
  - Pain in extremity [Unknown]
  - Decreased appetite [Unknown]
  - Vomiting [Unknown]
  - Fatigue [Unknown]
  - Nausea [Unknown]
